FAERS Safety Report 15922348 (Version 52)
Quarter: 2023Q1

REPORT INFORMATION
  Report Type: Spontaneous
  Country: CA (occurrence: CA)
  Receive Date: 20190206
  Receipt Date: 20230316
  Transmission Date: 20230418
  Serious: Yes (Hospitalization, Other)
  Sender: FDA-Public Use
  Company Number: CA-CELLTRION INC.-2019CA018486

PATIENT

DRUGS (56)
  1. INFLECTRA [Suspect]
     Active Substance: INFLIXIMAB-DYYB
     Indication: Crohn^s disease
     Dosage: 5 MG/KG, (ROUND UP) 0, 2, 6, THEN EVERY 8 WEEKS
     Route: 042
     Dates: start: 20190101
  2. INFLECTRA [Suspect]
     Active Substance: INFLIXIMAB-DYYB
     Dosage: 5 MG/KG, Q 0 WEEK DOSE
     Route: 042
     Dates: start: 20190101, end: 20190101
  3. INFLECTRA [Suspect]
     Active Substance: INFLIXIMAB-DYYB
     Dosage: 300 MG, 0, 4, 6, THEN EVERY 8 WEEKS
     Route: 042
     Dates: start: 20190129
  4. INFLECTRA [Suspect]
     Active Substance: INFLIXIMAB-DYYB
     Dosage: 5 MG/KG, Q 2 WEEK DOSE
     Route: 042
     Dates: start: 20190129, end: 20190129
  5. INFLECTRA [Suspect]
     Active Substance: INFLIXIMAB-DYYB
     Dosage: 300 MG, 0, 4, 6 THEN EVERY 8 WEEKS)
     Route: 042
     Dates: start: 20190320
  6. INFLECTRA [Suspect]
     Active Substance: INFLIXIMAB-DYYB
     Dosage: 300 MG, 0, 4, 6, THEN EVERY 8 WEEKS
     Route: 042
     Dates: start: 20190529
  7. INFLECTRA [Suspect]
     Active Substance: INFLIXIMAB-DYYB
     Dosage: 300 MG, 0, 4, 6, THEN EVERY 8 WEEKS
     Route: 042
     Dates: start: 20190529
  8. INFLECTRA [Suspect]
     Active Substance: INFLIXIMAB-DYYB
     Dosage: 5 MG/KG, EVERY 8 WEEKS
     Route: 042
     Dates: start: 20190529, end: 20200505
  9. INFLECTRA [Suspect]
     Active Substance: INFLIXIMAB-DYYB
     Dosage: 5 MG/KG, 0, 2, 6, THEN EVERY 8 WEEKS
     Route: 042
     Dates: start: 20190729
  10. INFLECTRA [Suspect]
     Active Substance: INFLIXIMAB-DYYB
     Dosage: 5 MG/KG, 0, 2, 6, THEN EVERY 8 WEEKS
     Route: 042
     Dates: start: 20190924
  11. INFLECTRA [Suspect]
     Active Substance: INFLIXIMAB-DYYB
     Dosage: 5 MG/KG, 0, 2, 6, THEN EVERY 8 WEEKS
     Route: 042
     Dates: start: 20191118
  12. INFLECTRA [Suspect]
     Active Substance: INFLIXIMAB-DYYB
     Dosage: 5 MG/KG, 0, 2, 6, THEN EVERY 8 WEEKS
     Route: 042
     Dates: start: 20200113
  13. INFLECTRA [Suspect]
     Active Substance: INFLIXIMAB-DYYB
     Dosage: 5 MG/KG, 0, 2, 6, THEN EVERY 8 WEEKS
     Route: 042
     Dates: start: 20200310
  14. INFLECTRA [Suspect]
     Active Substance: INFLIXIMAB-DYYB
     Dosage: 5 MG/KG, Q 6 WEEK DOSE
     Route: 042
     Dates: start: 20200320, end: 20200320
  15. INFLECTRA [Suspect]
     Active Substance: INFLIXIMAB-DYYB
     Dosage: 5 MG/KG, 0, 2, 6, THEN EVERY 8 WEEKS
     Route: 042
     Dates: start: 20200505
  16. INFLECTRA [Suspect]
     Active Substance: INFLIXIMAB-DYYB
     Dosage: 5 MG/KG, (ROUND UP) EVERY 6 WEEKS
     Route: 042
     Dates: start: 20200715, end: 20210120
  17. INFLECTRA [Suspect]
     Active Substance: INFLIXIMAB-DYYB
     Dosage: 5 MG/KG, (ROUND UP) EVERY 6 WEEKS
     Route: 042
     Dates: start: 20200828
  18. INFLECTRA [Suspect]
     Active Substance: INFLIXIMAB-DYYB
     Dosage: 5 MG/KG, (ROUND UP) EVERY 6 WEEKS
     Route: 042
     Dates: start: 20201008
  19. INFLECTRA [Suspect]
     Active Substance: INFLIXIMAB-DYYB
     Dosage: 5 MG/KG, (ROUND UP) EVERY 6 WEEKS
     Route: 042
     Dates: start: 20201120
  20. INFLECTRA [Suspect]
     Active Substance: INFLIXIMAB-DYYB
     Dosage: 5 MG/KG, (ROUND UP) EVERY 6 WEEKS
     Route: 042
     Dates: start: 20210121
  21. INFLECTRA [Suspect]
     Active Substance: INFLIXIMAB-DYYB
     Dosage: 670 MG, (10 MG/KG), EVERY 6 WEEKS (ROUNDED TO THE CLOSEST VIAL)
     Route: 042
     Dates: start: 20210302
  22. INFLECTRA [Suspect]
     Active Substance: INFLIXIMAB-DYYB
     Dosage: 10 MG/KG, EVERY 6 WEEKS
     Route: 042
     Dates: start: 20210408
  23. INFLECTRA [Suspect]
     Active Substance: INFLIXIMAB-DYYB
     Dosage: 10 MG/KG, EVERY 6 WEEKS
     Route: 042
     Dates: start: 20210518
  24. INFLECTRA [Suspect]
     Active Substance: INFLIXIMAB-DYYB
     Dosage: 10 MG/KG, EVERY 6 WEEKS
     Route: 042
     Dates: start: 20210518
  25. INFLECTRA [Suspect]
     Active Substance: INFLIXIMAB-DYYB
     Dosage: 10 MG/KG, EVERY 6 WEEKS
     Route: 042
     Dates: start: 20210629
  26. INFLECTRA [Suspect]
     Active Substance: INFLIXIMAB-DYYB
     Dosage: 10 MG/KG, EVERY 6 WEEKS
     Route: 042
     Dates: start: 20210818
  27. INFLECTRA [Suspect]
     Active Substance: INFLIXIMAB-DYYB
     Dosage: 10 MG/KG, EVERY 6 WEEKS
     Route: 042
     Dates: start: 20211004
  28. INFLECTRA [Suspect]
     Active Substance: INFLIXIMAB-DYYB
     Dosage: 10 MG/KG, EVERY 6 WEEKS
     Route: 042
     Dates: start: 20211118
  29. INFLECTRA [Suspect]
     Active Substance: INFLIXIMAB-DYYB
     Dosage: 5 MG/KG, (ROUND UP DOSE) EVERY 6 WEEKS
     Route: 042
     Dates: start: 20200715, end: 20210120
  30. INFLECTRA [Suspect]
     Active Substance: INFLIXIMAB-DYYB
     Dosage: 10 MG/KG, (ROUNDED TO THE CLOSEST VIAL) EVERY 6 WEEKS
     Route: 042
     Dates: start: 20210302
  31. INFLECTRA [Suspect]
     Active Substance: INFLIXIMAB-DYYB
     Dosage: 10 MG/KG, (ROUNDED TO THE CLOSEST VIAL) EVERY 6 WEEKS
     Route: 042
     Dates: start: 20210408
  32. INFLECTRA [Suspect]
     Active Substance: INFLIXIMAB-DYYB
     Dosage: 10 MG/KG, (ROUNDED TO THE CLOSEST VIAL) EVERY 6 WEEKS
     Route: 042
     Dates: start: 20210518
  33. INFLECTRA [Suspect]
     Active Substance: INFLIXIMAB-DYYB
     Dosage: 10 MG/KG, (ROUNDED TO THE CLOSEST VIAL) EVERY 6 WEEKS
     Route: 042
     Dates: start: 20210518
  34. INFLECTRA [Suspect]
     Active Substance: INFLIXIMAB-DYYB
     Dosage: 10 MG/KG, (ROUNDED TO THE CLOSEST VIAL) EVERY 6 WEEKS
     Route: 042
     Dates: start: 20210629
  35. INFLECTRA [Suspect]
     Active Substance: INFLIXIMAB-DYYB
     Dosage: 10 MG/KG, (ROUNDED TO THE CLOSEST VIAL) EVERY 6 WEEKS
     Route: 042
     Dates: start: 20210818
  36. INFLECTRA [Suspect]
     Active Substance: INFLIXIMAB-DYYB
     Dosage: 10 MG/KG, (ROUNDED TO THE CLOSEST VIAL) EVERY 6 WEEKS
     Route: 042
     Dates: start: 20211004
  37. INFLECTRA [Suspect]
     Active Substance: INFLIXIMAB-DYYB
     Dosage: 10 MG/KG, (ROUNDED TO THE CLOSEST VIAL) EVERY 6 WEEKS
     Route: 042
     Dates: start: 20211118
  38. INFLECTRA [Suspect]
     Active Substance: INFLIXIMAB-DYYB
     Dosage: 10 MG/KG, (ROUNDED TO THE CLOSEST VIAL) EVERY 6 WEEKS
     Route: 042
     Dates: start: 20220120
  39. INFLECTRA [Suspect]
     Active Substance: INFLIXIMAB-DYYB
     Dosage: 10 MG/KG, (ROUNDED TO THE CLOSEST VIAL) EVERY 6 WEEKS
     Route: 042
     Dates: start: 20220414
  40. INFLECTRA [Suspect]
     Active Substance: INFLIXIMAB-DYYB
     Dosage: 640 MG, EVERY 6 WEEKS
     Route: 042
     Dates: start: 20220707
  41. INFLECTRA [Suspect]
     Active Substance: INFLIXIMAB-DYYB
     Dosage: 10 MG/KG, (ROUNDED TO THE CLOSEST VIAL) EVERY 6 WEEKS
     Route: 042
     Dates: start: 20220707
  42. INFLECTRA [Suspect]
     Active Substance: INFLIXIMAB-DYYB
     Dosage: 10 MG/KG, (ROUNDED TO THE CLOSEST VIAL) EVERY 6 WEEKS
     Route: 042
     Dates: start: 20220916
  43. INFLECTRA [Suspect]
     Active Substance: INFLIXIMAB-DYYB
     Dosage: 10 MG/KG, (ROUNDED TO THE CLOSEST VIAL) EVERY 6 WEEKS
     Route: 042
     Dates: start: 20221026
  44. INFLECTRA [Suspect]
     Active Substance: INFLIXIMAB-DYYB
     Dosage: 10 MG/KG, (ROUNDED TO THE CLOSEST VIAL) EVERY 6 WEEKS
     Route: 042
     Dates: start: 20221208
  45. INFLECTRA [Suspect]
     Active Substance: INFLIXIMAB-DYYB
     Dosage: 10 MG/KG, (ROUNDED TO THE CLOSEST VIAL) EVERY 6 WEEKS
     Route: 042
     Dates: start: 20230119
  46. INFLECTRA [Suspect]
     Active Substance: INFLIXIMAB-DYYB
     Dosage: 660MG (10MG/KG EVERY 6 WEEKS)
     Route: 042
     Dates: start: 20230301
  47. GANCICLOVIR [Concomitant]
     Active Substance: GANCICLOVIR
     Indication: Cytomegalovirus colitis
     Dosage: 1 DF, UNKNOWN DOSE AND FREQUENCY
     Route: 065
  48. IRON [Concomitant]
     Active Substance: IRON
     Dosage: 1 DF, UNKNOWN DOSE AND FREQUENCY
     Route: 065
  49. LACTASE [Concomitant]
     Active Substance: LACTASE
     Dosage: 1 DF, UNKNOWN DOSE AND FREQUENCY
     Route: 065
  50. OLANZAPINE [Concomitant]
     Active Substance: OLANZAPINE
     Dosage: 1 DF, UNKNOWN DOSE AND FREQUENCY
     Route: 065
  51. PANTOPRAZOLE SODIUM [Concomitant]
     Active Substance: PANTOPRAZOLE SODIUM
     Dosage: 1 DF, 1X/DAY, UNKNOWN DOSE
     Route: 048
  52. PREDNISONE [Concomitant]
     Active Substance: PREDNISONE
     Indication: Anxiety disorder
     Dosage: UNK, X 56 DAYS,IN DECREASING DOSES
     Dates: start: 20190101, end: 2019
  53. QUETIAPINE [Concomitant]
     Active Substance: QUETIAPINE
     Dosage: 1 DF, (12.5 MG - IF NEEDED)
     Route: 065
  54. VALACYCLOVIR [Concomitant]
     Active Substance: VALACYCLOVIR HYDROCHLORIDE
     Indication: Cytomegalovirus colitis
     Dosage: UNK
  55. VALACYCLOVIR [Concomitant]
     Active Substance: VALACYCLOVIR HYDROCHLORIDE
     Dosage: 1 DF, UNKNOWN DOSE AND FREQUENCY
     Route: 065
  56. VALTREX [Concomitant]
     Active Substance: VALACYCLOVIR HYDROCHLORIDE
     Dosage: 500 MG

REACTIONS (37)
  - Pyelonephritis [Unknown]
  - Nephrolithiasis [Unknown]
  - Kidney infection [Unknown]
  - Anal ulcer [Not Recovered/Not Resolved]
  - Gastrointestinal haemorrhage [Unknown]
  - Iron deficiency anaemia [Unknown]
  - Condition aggravated [Not Recovered/Not Resolved]
  - Mental disorder [Unknown]
  - Vaginal infection [Recovered/Resolved]
  - Drug level decreased [Unknown]
  - Off label use [Unknown]
  - Off label use [Unknown]
  - Intentional product use issue [Unknown]
  - Inappropriate schedule of product administration [Unknown]
  - Nausea [Unknown]
  - Migraine [Not Recovered/Not Resolved]
  - Influenza [Recovered/Resolved]
  - Chest pain [Unknown]
  - Headache [Recovering/Resolving]
  - Body temperature increased [Unknown]
  - Vomiting [Unknown]
  - Aphthous ulcer [Not Recovered/Not Resolved]
  - Anal fissure [Not Recovered/Not Resolved]
  - Abdominal discomfort [Unknown]
  - Mouth ulceration [Recovering/Resolving]
  - Urinary tract infection [Recovered/Resolved]
  - Pain [Unknown]
  - Aphonia [Unknown]
  - Pain in extremity [Recovered/Resolved]
  - Hypoaesthesia [Recovered/Resolved]
  - Vulvovaginal mycotic infection [Recovering/Resolving]
  - Asthenia [Not Recovered/Not Resolved]
  - Pharyngeal ulceration [Not Recovered/Not Resolved]
  - Emotional disorder [Not Recovered/Not Resolved]
  - Blood pressure increased [Not Recovered/Not Resolved]
  - Urinary tract infection [Not Recovered/Not Resolved]
  - Urinary tract infection [Recovered/Resolved]

NARRATIVE: CASE EVENT DATE: 20190129
